FAERS Safety Report 7361986-9 (Version None)
Quarter: 2011Q1

REPORT INFORMATION
  Report Type: 
  Country: None (occurrence: None)
  Receive Date: 20110318
  Receipt Date: 20110313
  Transmission Date: 20110831
  Serious: Yes (Hospitalization)
  Sender: FDA-Public Use
  Company Number: CZ-BAYER-2011-017678

PATIENT
  Sex: Male

DRUGS (8)
  1. ANDROCUR [Concomitant]
     Dosage: DAILY DOSE 200 MG
     Dates: start: 19990101
  2. ASCORUTIN [Concomitant]
     Dosage: UNK
     Route: 048
     Dates: start: 20100101
  3. SORAFENIB (RAF KINASE INHIBITOR) [Suspect]
     Indication: HEPATIC NEOPLASM MALIGNANT
     Dosage: DAILY DOSE 800 MG
     Route: 048
     Dates: start: 20100624, end: 20100721
  4. PENTOMER [Concomitant]
     Dosage: DAILY DOSE 400 MG
     Route: 048
     Dates: start: 20100101
  5. AGEN [Concomitant]
     Dosage: DAILY DOSE 10 MG
     Route: 048
     Dates: start: 20100101
  6. AROTINOL [Concomitant]
     Dosage: DAILY DOSE 2 GTT
     Route: 047
     Dates: start: 20100101
  7. TRAMAL [Concomitant]
     Dosage: DAILY DOSE 100 MG
     Route: 048
     Dates: start: 20100401
  8. LOKREN [Concomitant]
     Dosage: DAILY DOSE 20 MG
     Route: 048

REACTIONS (1)
  - GENERAL PHYSICAL HEALTH DETERIORATION [None]
